FAERS Safety Report 9678155 (Version 2)
Quarter: 2013Q4

REPORT INFORMATION
  Report Type: Report from Study
  Country: JP (occurrence: JP)
  Receive Date: 20131108
  Receipt Date: 20131108
  Transmission Date: 20140711
  Serious: Yes (Death)
  Sender: FDA-Public Use
  Company Number: JP-TAKEDA-TCI2013A02137

PATIENT
  Age: 83 Year
  Sex: Female
  Weight: 64 kg

DRUGS (8)
  1. NESINA TABLETS 25MG [Suspect]
     Indication: TYPE 2 DIABETES MELLITUS
     Dosage: 25 MG, QD
     Route: 048
     Dates: start: 20120409, end: 20121004
  2. BLOPRESS [Concomitant]
     Dosage: UNK
     Route: 048
  3. LIPITOR [Concomitant]
     Dosage: UNK
     Route: 048
  4. WARFARIN [Concomitant]
     Route: 048
  5. SENNAL [Concomitant]
     Dosage: UNK
     Route: 048
  6. MAGNESIUM OXIDE [Concomitant]
     Dosage: UNK
     Route: 048
  7. ARGAMATE [Concomitant]
     Dosage: UNK
     Route: 048
  8. LASIX [Concomitant]
     Route: 048

REACTIONS (1)
  - Sudden death [Fatal]
